FAERS Safety Report 4300629-5 (Version None)
Quarter: 2004Q1

REPORT INFORMATION
  Report Type: 
  Country: None (occurrence: None)
  Receive Date: 20040218
  Receipt Date: 20040209
  Transmission Date: 20041129
  Serious: Yes (Hospitalization, Other)
  Sender: FDA-Public Use
  Company Number: 2004199075CH

PATIENT
  Age: 57 Year
  Sex: Male
  Weight: 100 kg

DRUGS (10)
  1. FRAGMIN [Suspect]
     Indication: THROMBOSIS PROPHYLAXIS
     Dosage: 18000, SUBCUTANEOUS
     Route: 058
     Dates: start: 20040107, end: 20040108
  2. CORDARONE [Suspect]
     Indication: ATRIAL FLUTTER
     Dosage: 1200 MG, DAILY, IV DRIP; 300 MG, IV
     Route: 041
     Dates: start: 20040107, end: 20040107
  3. CORDARONE [Suspect]
     Indication: ATRIAL FLUTTER
     Dosage: 1200 MG, DAILY, IV DRIP; 300 MG, IV
     Route: 041
     Dates: start: 20040107, end: 20040109
  4. MARCOUMAR(PHENPROCOUM) [Suspect]
     Indication: PROPHYLAXIS
     Dosage: 6 OR 9 MG, DAILY, ORAL
     Route: 048
     Dates: start: 20040107, end: 20040108
  5. TENORMIN [Concomitant]
  6. LISINOPRIL [Concomitant]
  7. TOREM [Concomitant]
  8. ALDACTONE [Concomitant]
  9. KALIUM HAUSMANN [Concomitant]
  10. SERESTA [Concomitant]

REACTIONS (3)
  - HEPATOCELLULAR DAMAGE [None]
  - PROTHROMBIN TIME PROLONGED [None]
  - RENAL IMPAIRMENT [None]
